FAERS Safety Report 6357427-0 (Version None)
Quarter: 2009Q3

REPORT INFORMATION
  Report Type: 
  Country: None (occurrence: None)
  Receive Date: 20090916
  Receipt Date: 20090909
  Transmission Date: 20100115
  Serious: Yes (Life-Threatening)
  Sender: FDA-Public Use
  Company Number: GB-JNJFOC-20090904317

PATIENT
  Age: 53 Year
  Sex: Female

DRUGS (1)
  1. ACETAMINOPHEN AND CODEINE PHOSPHATE [Suspect]
     Indication: DRUG USE FOR UNKNOWN INDICATION
     Route: 065

REACTIONS (5)
  - BLISTER [None]
  - DEPRESSED LEVEL OF CONSCIOUSNESS [None]
  - INTENTIONAL DRUG MISUSE [None]
  - RESPIRATORY FAILURE [None]
  - THERAPEUTIC AGENT TOXICITY [None]
